FAERS Safety Report 6021462-2 (Version None)
Quarter: 2008Q4

REPORT INFORMATION
  Report Type: 
  Country: None (occurrence: None)
  Receive Date: 20081229
  Receipt Date: 20081218
  Transmission Date: 20090506
  Serious: No
  Sender: FDA-Public Use
  Company Number: US-JNJFOC-20081205734

PATIENT
  Sex: Female
  Weight: 63.5 kg

DRUGS (9)
  1. FENTANYL TRANSDERMAL SYSTEM [Suspect]
     Indication: PAIN
     Dosage: 100UG/HR + 25UG/HR
     Route: 062
  2. FENTANYL TRANSDERMAL SYSTEM [Suspect]
     Indication: PAIN
     Route: 062
  3. DURAGESIC-100 [Suspect]
     Indication: PAIN
     Route: 062
  4. MORPHINE [Concomitant]
     Indication: BREAKTHROUGH PAIN
     Dosage: EVERY 4 TO 6 HOURS
     Route: 048
  5. PHENERGAN HCL [Concomitant]
     Indication: NAUSEA
     Dosage: EVERY 4 TO 6 HOURS
     Route: 048
  6. MONOPRIL [Concomitant]
     Indication: HYPERTENSION
     Route: 048
  7. TOPROL-XL [Concomitant]
     Indication: CARDIAC DISORDER
     Route: 048
  8. VERAPAMIL [Concomitant]
     Indication: BLOOD PRESSURE
     Dosage: 120MG EVERY NIGHT
     Route: 048
  9. VERAPAMIL [Concomitant]
     Indication: CARDIAC DISORDER
     Dosage: 120 MG EVERY MORNING
     Route: 048

REACTIONS (7)
  - APPLICATION SITE REACTION [None]
  - DRUG ADMINISTERED AT INAPPROPRIATE SITE [None]
  - PRURITUS [None]
  - SCAB [None]
  - SCRATCH [None]
  - SKIN IRRITATION [None]
  - WRONG TECHNIQUE IN DRUG USAGE PROCESS [None]
